FAERS Safety Report 4965271-1 (Version None)
Quarter: 2006Q1

REPORT INFORMATION
  Report Type: 
  Country: None (occurrence: None)
  Receive Date: 20060201
  Receipt Date: 20051212
  Transmission Date: 20060701
  Serious: No
  Sender: FDA-Public Use
  Company Number: 2005PV005773

PATIENT
  Sex: Female

DRUGS (4)
  1. BYETTA [Suspect]
     Dosage: SC
     Route: 058
     Dates: start: 20051201
  2. GLIPIZIDE [Concomitant]
  3. AVANDIA [Concomitant]
  4. NIASPAN [Concomitant]

REACTIONS (2)
  - FLUSHING [None]
  - TREMOR [None]
